FAERS Safety Report 19403157 (Version 1)
Quarter: 2021Q2

REPORT INFORMATION
  Report Type: Spontaneous
  Country: US (occurrence: US)
  Receive Date: 20210610
  Receipt Date: 20210610
  Transmission Date: 20210717
  Serious: Yes (Other)
  Sender: FDA-Public Use
  Company Number: US-SA-2021SA186421

PATIENT
  Age: 74 Year
  Sex: Female

DRUGS (1)
  1. AFLIBERCEPT [Suspect]
     Active Substance: AFLIBERCEPT
     Indication: SUBRETINAL FLUID
     Route: 031

REACTIONS (8)
  - Ocular hyperaemia [Unknown]
  - Visual impairment [Unknown]
  - Hypopyon [Unknown]
  - Visual acuity reduced [Recovering/Resolving]
  - Endophthalmitis [Unknown]
  - Retinal haemorrhage [Recovering/Resolving]
  - Eye pain [Unknown]
  - Vitritis [Unknown]
